FAERS Safety Report 9323076 (Version 1)
Quarter: 2013Q2

REPORT INFORMATION
  Report Type: Spontaneous
  Country: US (occurrence: US)
  Receive Date: 20130603
  Receipt Date: 20130603
  Transmission Date: 20140414
  Serious: Yes (Other)
  Sender: FDA-Public Use
  Company Number: CHPA2013US008928

PATIENT
  Age: 43 Year
  Sex: Male

DRUGS (8)
  1. LAMISIL AT ATHLETE^S FOOT CREAM [Suspect]
     Indication: TINEA PEDIS
     Dosage: UNK DF, PRN
     Route: 061
  2. LAMISIL AT ATHLETE^S FOOT CREAM [Suspect]
     Indication: TINEA CRURIS
  3. LAMISIL AT [Suspect]
     Indication: TINEA PEDIS
     Dosage: UNK DF, PRN
     Route: 061
  4. LAMISIL AT [Suspect]
     Indication: TINEA CRURIS
  5. LAMISIL [Suspect]
     Indication: TINEA PEDIS
     Dosage: UNK DF, PRN
     Route: 061
  6. LAMISIL [Suspect]
     Indication: TINEA CRURIS
  7. LAMISIL AT CONTINUOUS SPRAY, ATHLETE^S FOOT [Suspect]
     Indication: TINEA PEDIS
     Dosage: UNK DF, PRN
     Route: 061
  8. LAMISIL AT CONTINUOUS SPRAY, ATHLETE^S FOOT [Suspect]
     Indication: TINEA CRURIS

REACTIONS (6)
  - Carpal tunnel syndrome [Not Recovered/Not Resolved]
  - Tinea pedis [Recovered/Resolved]
  - Condition aggravated [Recovered/Resolved]
  - Laceration [Recovered/Resolved]
  - Pruritus [Recovered/Resolved]
  - Burning sensation [Recovered/Resolved]
